FAERS Safety Report 7107556-9 (Version None)
Quarter: 2010Q4

REPORT INFORMATION
  Report Type: 
  Country: None (occurrence: None)
  Receive Date: 20101117
  Receipt Date: 20101109
  Transmission Date: 20110411
  Serious: No
  Sender: FDA-Public Use
  Company Number: US-PFIZER INC-2010147952

PATIENT
  Sex: Female
  Weight: 67 kg

DRUGS (1)
  1. GABAPENTIN [Suspect]
     Indication: ARTHRITIS
     Dosage: UNK
     Route: 048
     Dates: start: 20100101

REACTIONS (2)
  - DRUG INEFFECTIVE [None]
  - POOR QUALITY SLEEP [None]
